FAERS Safety Report 5565960-4 (Version None)
Quarter: 2007Q4

REPORT INFORMATION
  Report Type: 
  Country: None (occurrence: None)
  Receive Date: 20071219
  Receipt Date: 20071212
  Transmission Date: 20080405
  Serious: Yes (Hospitalization, Other)
  Sender: FDA-Public Use
  Company Number: US-JNJFOC-20070903527

PATIENT
  Sex: Female
  Weight: 61.69 kg

DRUGS (13)
  1. FENTANYL TRANSDERMAL SYSTEM [Suspect]
     Indication: RHEUMATOID ARTHRITIS
     Route: 062
  2. FENTANYL TRANSDERMAL SYSTEM [Suspect]
     Indication: SCLERODERMA
     Route: 062
  3. FENTANYL TRANSDERMAL SYSTEM [Suspect]
     Indication: PAIN
     Route: 062
  4. SULFASALAZINE [Suspect]
     Indication: PAIN
     Route: 048
  5. K-DUR 10 [Concomitant]
     Indication: HYPERTENSION
     Route: 048
  6. LASIX [Concomitant]
     Indication: HYPERTENSION
     Route: 048
  7. VASOTEC [Concomitant]
     Indication: HYPERTENSION
     Route: 048
  8. FLEXERIL [Concomitant]
     Indication: MUSCLE SPASMS
     Route: 048
  9. ATIVAN [Concomitant]
     Route: 048
  10. PROCARDIA [Concomitant]
     Indication: CARDIAC DISORDER
     Route: 048
  11. NOVAFED [Concomitant]
     Indication: MULTIPLE ALLERGIES
     Route: 048
  12. HYDROCODONE BITARTRATE [Concomitant]
     Indication: PAIN
     Dosage: EVERY 4-6 HOURS AS NEEDED
     Route: 048
  13. FLOVENT [Concomitant]
     Indication: ASTHMA
     Route: 055

REACTIONS (12)
  - ABASIA [None]
  - ASTHMA [None]
  - CHEST PAIN [None]
  - DRUG INEFFECTIVE [None]
  - DYSKINESIA [None]
  - NERVOUSNESS [None]
  - PAIN IN EXTREMITY [None]
  - PHARMACEUTICAL PRODUCT COMPLAINT [None]
  - PRURITUS [None]
  - RENAL FAILURE [None]
  - WITHDRAWAL SYNDROME [None]
  - WRONG TECHNIQUE IN DRUG USAGE PROCESS [None]
